FAERS Safety Report 10050309 (Version 2)
Quarter: 2014Q2

REPORT INFORMATION
  Report Type: Spontaneous
  Country: GB (occurrence: GB)
  Receive Date: 20140401
  Receipt Date: 20140401
  Transmission Date: 20141212
  Serious: Yes (Death, Other)
  Sender: FDA-Public Use
  Company Number: GXKR2009GB04628

PATIENT
  Age: 66 Year
  Sex: Female

DRUGS (12)
  1. OXALIPLATIN [Suspect]
     Indication: COLORECTAL CANCER METASTATIC
     Dosage: 200 MG, EVERY 21/7
     Route: 042
     Dates: start: 20090119
  2. XELODA [Suspect]
     Indication: COLORECTAL CANCER METASTATIC
     Dosage: 1650 MG, BID
     Route: 048
     Dates: start: 20090119, end: 20090221
  3. AVASTIN [Suspect]
     Indication: METASTASES TO LIVER
  4. AVASTIN [Suspect]
     Indication: METASTASES TO LUNG
  5. AVASTIN [Suspect]
     Indication: COLORECTAL CANCER METASTATIC
  6. BUSCOPAN [Concomitant]
     Dosage: 6 UG
  7. CEFUROXIME [Concomitant]
     Indication: PYREXIA
     Dosage: 750 MG
     Route: 042
  8. CEFUROXIME [Concomitant]
     Indication: NEUTROPENIA
  9. CIPROFLOXACIN [Concomitant]
     Dosage: 400 MG
     Route: 042
     Dates: start: 20090221, end: 20090301
  10. HALOPERIDOL [Concomitant]
     Dosage: 1 MG
     Dates: start: 20090225
  11. MORPHINE [Concomitant]
  12. NEUPOGEN [Concomitant]
     Indication: NEUTROPENIA

REACTIONS (3)
  - Colitis ischaemic [Fatal]
  - Diarrhoea [Unknown]
  - Migraine [Not Recovered/Not Resolved]
